FAERS Safety Report 25379857 (Version 4)
Quarter: 2025Q3

REPORT INFORMATION
  Report Type: Report from Study
  Country: KR (occurrence: KR)
  Receive Date: 20250530
  Receipt Date: 20250709
  Transmission Date: 20251020
  Serious: Yes (Hospitalization)
  Sender: ABBVIE
  Company Number: KR-ABBVIE-6303430

PATIENT
  Age: 64 Year
  Sex: Male
  Weight: 65 kg

DRUGS (9)
  1. SKYRIZI [Suspect]
     Active Substance: RISANKIZUMAB-RZAA
     Indication: Psoriasis
     Route: 058
     Dates: start: 20240809, end: 20240809
  2. SKYRIZI [Suspect]
     Active Substance: RISANKIZUMAB-RZAA
     Route: 058
     Dates: start: 20231101, end: 20231101
  3. SKYRIZI [Suspect]
     Active Substance: RISANKIZUMAB-RZAA
     Route: 058
     Dates: start: 20240517, end: 20240517
  4. SKYRIZI [Suspect]
     Active Substance: RISANKIZUMAB-RZAA
     Route: 058
     Dates: start: 20241101, end: 20241101
  5. SKYRIZI [Suspect]
     Active Substance: RISANKIZUMAB-RZAA
     Route: 058
     Dates: start: 20231129, end: 20231129
  6. SKYRIZI [Suspect]
     Active Substance: RISANKIZUMAB-RZAA
     Route: 058
     Dates: start: 20240221, end: 20240221
  7. Beporin sr [Concomitant]
     Indication: Psoriasis
     Route: 048
     Dates: start: 20250124
  8. Dermotasone mle [Concomitant]
     Indication: Product used for unknown indication
     Dosage: UNIT DOSE: 1 FU
     Route: 061
     Dates: start: 20250124
  9. Allerginon [Concomitant]
     Indication: Psoriasis
     Dosage: 20 MG
     Route: 048
     Dates: start: 20231101

REACTIONS (2)
  - Angina unstable [Recovered/Resolved]
  - Large intestine polyp [Recovered/Resolved]

NARRATIVE: CASE EVENT DATE: 20231204
